FAERS Safety Report 18506612 (Version 10)
Quarter: 2022Q3

REPORT INFORMATION
  Report Type: Report from Study
  Country: US (occurrence: US)
  Receive Date: 20201116
  Receipt Date: 20220930
  Transmission Date: 20221027
  Serious: Yes (Hospitalization, Other)
  Sender: FDA-Public Use
  Company Number: US-PFIZER INC-2020282076

PATIENT
  Age: 62 Year
  Sex: Female

DRUGS (4)
  1. IBRANCE [Suspect]
     Active Substance: PALBOCICLIB
     Indication: Breast cancer female
     Dosage: 125 MG, CYCLIC (DAILY, 21 DAYS ON, 7 DAYS OFF)
     Route: 048
     Dates: start: 20200721
  2. IBRANCE [Suspect]
     Active Substance: PALBOCICLIB
     Dosage: 100 MG, CYCLIC (ONCE DAILY FOR 21 DAYS ON/7 DAYS OFF)
     Route: 048
     Dates: start: 202011, end: 202201
  3. IBRANCE [Suspect]
     Active Substance: PALBOCICLIB
     Dosage: 100 MG, CYCLIC [100 MG/QD FOR 21 DAYS ON, 7 OFF]
     Route: 048
     Dates: start: 20220421, end: 20220925
  4. FASLODEX [Concomitant]
     Active Substance: FULVESTRANT
     Dosage: UNK

REACTIONS (21)
  - Asthenia [Unknown]
  - Vomiting [Unknown]
  - Urinary tract infection [Unknown]
  - Syncope [Unknown]
  - Haematochezia [Unknown]
  - Atrial fibrillation [Recovered/Resolved]
  - Macular degeneration [Unknown]
  - Dyspnoea [Recovered/Resolved]
  - Dizziness [Unknown]
  - Fatigue [Unknown]
  - White blood cell count decreased [Recovering/Resolving]
  - Urine odour abnormal [Unknown]
  - Anaemia [Recovering/Resolving]
  - Diarrhoea [Recovering/Resolving]
  - Hot flush [Unknown]
  - COVID-19 [Recovering/Resolving]
  - Gastrooesophageal reflux disease [Recovering/Resolving]
  - Vitamin D decreased [Recovering/Resolving]
  - Arthralgia [Unknown]
  - Food intolerance [Unknown]
  - Gallbladder disorder [Unknown]

NARRATIVE: CASE EVENT DATE: 20220101
